FAERS Safety Report 10282468 (Version 1)
Quarter: 2014Q3

REPORT INFORMATION
  Report Type: Spontaneous
  Country: JP (occurrence: JP)
  Receive Date: 20140707
  Receipt Date: 20140707
  Transmission Date: 20150326
  Serious: Yes (Death, Other)
  Sender: FDA-Public Use
  Company Number: JP-009507513-1407JPN003055

PATIENT
  Age: 81 Year
  Sex: Male
  Weight: 56 kg

DRUGS (3)
  1. FINIBAX [Concomitant]
     Active Substance: DORIPENEM MONOHYDRATE
     Indication: SEPSIS
     Dosage: 1 G, 3/ 1 DAY
     Route: 041
     Dates: start: 20140407, end: 20140411
  2. CANCIDAS [Suspect]
     Active Substance: CASPOFUNGIN ACETATE
     Indication: FEBRILE NEUTROPENIA
     Dosage: 50 MG, 1/1 DAY
     Route: 041
     Dates: start: 20140409, end: 20140411
  3. CANCIDAS [Suspect]
     Active Substance: CASPOFUNGIN ACETATE
     Indication: FEBRILE NEUTROPENIA
     Dosage: 70 MG, 1/1 DAY
     Route: 041
     Dates: start: 20140408, end: 20140408

REACTIONS (2)
  - Drug ineffective [Unknown]
  - Diffuse large B-cell lymphoma [Fatal]

NARRATIVE: CASE EVENT DATE: 20140411
